FAERS Safety Report 4982267-4 (Version None)
Quarter: 2006Q1

REPORT INFORMATION
  Report Type: 
  Country: None (occurrence: None)
  Receive Date: 20060227
  Receipt Date: 20050509
  Transmission Date: 20060701
  Serious: Yes (Hospitalization)
  Sender: FDA-Public Use
  Company Number: WAES 0505USA01275

PATIENT
  Age: 46 Year
  Sex: Female

DRUGS (8)
  1. ZOCOR [Suspect]
     Indication: HYPERLIPIDAEMIA
     Dosage: 20 MG/DAILY/PO
     Route: 048
     Dates: start: 20020101, end: 20030513
  2. ATORVASTATIN CALCIUM [Suspect]
     Dates: end: 20020101
  3. AMBIEN [Concomitant]
  4. AVALIDE [Concomitant]
  5. EFFEXOR [Concomitant]
  6. MIDRIN [Concomitant]
  7. MIRAPEX [Concomitant]
  8. NEURONTIN [Concomitant]

REACTIONS (1)
  - RHABDOMYOLYSIS [None]
